FAERS Safety Report 6033991-6 (Version None)
Quarter: 2009Q1

REPORT INFORMATION
  Report Type: 
  Country: None (occurrence: None)
  Receive Date: 20090109
  Receipt Date: 20090109
  Transmission Date: 20090719
  Serious: Yes (Hospitalization)
  Sender: FDA-Public Use
  Company Number: None

PATIENT
  Sex: Male
  Weight: 82 kg

DRUGS (2)
  1. CISPLATIN [Suspect]
     Dosage: 117 MG
  2. ETOPOSIDE [Suspect]
     Dosage: 450 MG

REACTIONS (7)
  - CULTURE URINE POSITIVE [None]
  - CYSTITIS [None]
  - ESCHERICHIA INFECTION [None]
  - LYMPHOPENIA [None]
  - PROTEUS INFECTION [None]
  - SEPSIS [None]
  - URINARY TRACT INFECTION [None]
